FAERS Safety Report 5836375-6 (Version None)
Quarter: 2008Q3

REPORT INFORMATION
  Report Type: 
  Country: None (occurrence: None)
  Receive Date: 20080806
  Receipt Date: 20080806
  Transmission Date: 20090109
  Serious: Yes (Other)
  Sender: FDA-Public Use
  Company Number: None

PATIENT
  Age: 22 Year
  Sex: Female
  Weight: 54.4316 kg

DRUGS (1)
  1. YAZ [Suspect]
     Indication: SKIN DISORDER
     Dosage: 1 PILL DAILY PO
     Route: 048
     Dates: start: 20080301, end: 20080529

REACTIONS (5)
  - ASTHENOPIA [None]
  - HEADACHE [None]
  - MALAISE [None]
  - VISION BLURRED [None]
  - VISUAL IMPAIRMENT [None]
